FAERS Safety Report 20437419 (Version 1)
Quarter: 2022Q1

REPORT INFORMATION
  Report Type: Spontaneous
  Country: US (occurrence: None)
  Receive Date: 20220204
  Receipt Date: 20220204
  Transmission Date: 20220423
  Serious: Yes (Other)
  Sender: FDA-Public Use
  Company Number: None

PATIENT
  Age: 68 Year
  Sex: Male
  Weight: 90 kg

DRUGS (5)
  1. MOLNUPIRAVIR [Suspect]
     Active Substance: MOLNUPIRAVIR
     Indication: COVID-19
     Dosage: OTHER QUANTITY : 4 CAPSULE(S);?FREQUENCY : EVERY 12 HOURS;?
     Route: 048
  2. Xarelto (daily for last 2+ years) [Concomitant]
  3. Molnupiravir (02/03/2022, single dose used only) [Concomitant]
  4. Zinc 50MG [Concomitant]
  5. VITAMIN C [Concomitant]
     Active Substance: ASCORBIC ACID

REACTIONS (9)
  - Seizure [None]
  - Eye movement disorder [None]
  - Incoherent [None]
  - Unresponsive to stimuli [None]
  - Agitation [None]
  - Hyperhidrosis [None]
  - Vomiting [None]
  - Diarrhoea [None]
  - Fatigue [None]

NARRATIVE: CASE EVENT DATE: 20220203
